FAERS Safety Report 7631057-2 (Version None)
Quarter: 2011Q3

REPORT INFORMATION
  Report Type: 
  Country: None (occurrence: None)
  Receive Date: 20110715
  Receipt Date: 20110708
  Transmission Date: 20111222
  Serious: Yes (Hospitalization)
  Sender: FDA-Public Use
  Company Number: GB-ACCORD-009857

PATIENT
  Age: 62 Year
  Sex: Male
  Weight: 73 kg

DRUGS (9)
  1. HUMALOG (HUMALOG) [Concomitant]
  2. LISINOPRIL [Concomitant]
  3. SIMVASTATIN [Concomitant]
  4. IRINOTECAN HCL [Suspect]
     Indication: COLORECTAL CANCER METASTATIC
     Dosage: 330.00-MG-/ INTRAVENOUS (NOT OTHERWISE SPECIFIED)
     Route: 042
     Dates: start: 20110426, end: 20110426
  5. EYE DROPS (EYE DROPS) [Concomitant]
  6. FERROUS SULPHATE (FERROUS SULPHATE) [Concomitant]
  7. FLUOROURACIL [Suspect]
     Indication: COLORECTAL CANCER METASTATIC
     Dosage: / INTRAVENOUS (NOT OTHERWISE SPECIFIED)
     Route: 042
     Dates: start: 20110426, end: 20110428
  8. MIXTARD HUMAN 70/30 [Concomitant]
  9. LANSOPRAZOLE [Concomitant]

REACTIONS (2)
  - URINARY RETENTION [None]
  - CONSTIPATION [None]
